FAERS Safety Report 13467986 (Version 3)
Quarter: 2017Q3

REPORT INFORMATION
  Report Type: Report from Study
  Country: CA (occurrence: CA)
  Receive Date: 20170421
  Receipt Date: 20170828
  Transmission Date: 20171127
  Serious: Yes (Hospitalization)
  Sender: FDA-Public Use
  Company Number: CA-REGENERON PHARMACEUTICALS, INC.-2017-14629

PATIENT

DRUGS (3)
  1. EYLEA [Suspect]
     Active Substance: AFLIBERCEPT
     Indication: DIABETIC RETINAL OEDEMA
     Dosage: 2 MG, OD (PT RECEIVED TOTAL OF 4 DOSES IN OD)
     Route: 031
     Dates: start: 20160927
  2. EYLEA [Suspect]
     Active Substance: AFLIBERCEPT
     Dosage: 2 MG, LAST DOSE PRIOR THE EVENT
     Route: 031
     Dates: start: 20170131, end: 20170131
  3. EYLEA [Suspect]
     Active Substance: AFLIBERCEPT
     Dosage: 2 MG, OS (PT RECEIVED TOTAL OF 3 DOSES IN OS)
     Route: 031
     Dates: start: 20161028

REACTIONS (1)
  - Coronary artery disease [Unknown]
